FAERS Safety Report 17225584 (Version 1)
Quarter: 2020Q1

REPORT INFORMATION
  Report Type: Spontaneous
  Country: GB (occurrence: GB)
  Receive Date: 20200102
  Receipt Date: 20200102
  Transmission Date: 20200409
  Serious: Yes (Hospitalization, Other)
  Sender: FDA-Public Use
  Company Number: GB-BAYER-2019-121544

PATIENT
  Sex: Male

DRUGS (1)
  1. NEXAVAR [Suspect]
     Active Substance: SORAFENIB
     Indication: ACUTE MYELOID LEUKAEMIA
     Dosage: 800 MG DAILY (FOR 12 MONTHS)
     Dates: start: 20190929, end: 20191010

REACTIONS (12)
  - Cytomegalovirus infection [None]
  - Epstein-Barr virus infection [None]
  - Confusional state [None]
  - Pyrexia [None]
  - Post transplant lymphoproliferative disorder [None]
  - Pneumonia pseudomonal [None]
  - Off label use [None]
  - Basal ganglia infarction [None]
  - Product use in unapproved indication [None]
  - Febrile neutropenia [None]
  - Cough [None]
  - Diplopia [None]

NARRATIVE: CASE EVENT DATE: 20191119
